FAERS Safety Report 4312134-0 (Version None)
Quarter: 2004Q1

REPORT INFORMATION
  Report Type: 
  Country: None (occurrence: None)
  Receive Date: 20040305
  Receipt Date: 20040224
  Transmission Date: 20041129
  Serious: Yes (Hospitalization)
  Sender: FDA-Public Use
  Company Number: GB-BRISTOL-MYERS SQUIBB COMPANY-12517579

PATIENT

DRUGS (2)
  1. ARIPIPRAZOLE [Suspect]
     Indication: SCHIZOPHRENIA
     Route: 048
  2. CLOZAPINE [Concomitant]
     Dosage: PRIOR TO STARTING ARIPIPRAZOLE

REACTIONS (2)
  - SCHIZOPHRENIA [None]
  - WEIGHT DECREASED [None]
